FAERS Safety Report 24167436 (Version 1)
Quarter: 2024Q3

REPORT INFORMATION
  Report Type: Spontaneous
  Country: US (occurrence: US)
  Receive Date: 20240802
  Receipt Date: 20240802
  Transmission Date: 20241016
  Serious: Yes (Hospitalization, Other)
  Sender: STEMLINE THERAPEUTICS
  Company Number: US-Stemline Therapeutics, Inc.-2024ST004669

PATIENT
  Age: 46 Year
  Sex: Female

DRUGS (1)
  1. ORSERDU [Suspect]
     Active Substance: ELACESTRANT
     Indication: Product used for unknown indication
     Dosage: 345 MG
     Route: 048
     Dates: start: 20240713

REACTIONS (6)
  - Hepatic function abnormal [Unknown]
  - Ascites [Unknown]
  - Peripheral swelling [Unknown]
  - Fluid retention [Unknown]
  - Vomiting [Unknown]
  - Diarrhoea [Unknown]
